FAERS Safety Report 8390544-2 (Version None)
Quarter: 2012Q2

REPORT INFORMATION
  Report Type: 
  Country: None (occurrence: None)
  Receive Date: 20120529
  Receipt Date: 20120524
  Transmission Date: 20120825
  Serious: Yes (Other)
  Sender: FDA-Public Use
  Company Number: US-PFIZER INC-2012126829

PATIENT
  Sex: Male

DRUGS (1)
  1. TIKOSYN [Suspect]
     Dosage: UNK

REACTIONS (3)
  - ELECTROCARDIOGRAM QT PROLONGED [None]
  - CREATININE RENAL CLEARANCE DECREASED [None]
  - BLOOD POTASSIUM DECREASED [None]
